FAERS Safety Report 10634100 (Version 1)
Quarter: 2014Q4

REPORT INFORMATION
  Report Type: Spontaneous
  Country: US (occurrence: None)
  Receive Date: 20141203
  Receipt Date: 20141203
  Transmission Date: 20150529
  Serious: Yes (Other)
  Sender: FDA-Public Use
  Company Number: HA14-427-AE

PATIENT
  Sex: Female

DRUGS (1)
  1. SMZ / TMP [Suspect]
     Active Substance: SULFAMETHOXAZOLE\TRIMETHOPRIM
     Route: 048

REACTIONS (4)
  - Intestinal obstruction [None]
  - Product solubility abnormal [None]
  - Muscle spasms [None]
  - Abdominal pain [None]
